FAERS Safety Report 4751308-1 (Version None)
Quarter: 2005Q3

REPORT INFORMATION
  Report Type: 
  Country: None (occurrence: None)
  Receive Date: 20050822
  Receipt Date: 20050822
  Transmission Date: 20060218
  Serious: Yes (Disabling)
  Sender: FDA-Public Use
  Company Number: None

PATIENT
  Sex: Female
  Weight: 73.4827 kg

DRUGS (5)
  1. NARDIL [Suspect]
     Indication: BIPOLAR II DISORDER
     Dosage: 90 MG    DAY
  2. NARDIL [Suspect]
     Indication: MAJOR DEPRESSION
     Dosage: 90 MG    DAY
  3. DEXEDRINE [Concomitant]
  4. NEURONTIN [Concomitant]
  5. LAMICTAL [Concomitant]

REACTIONS (2)
  - DRUG INEFFECTIVE [None]
  - PHARMACEUTICAL PRODUCT COMPLAINT [None]
